FAERS Safety Report 5522836-6 (Version None)
Quarter: 2007Q4

REPORT INFORMATION
  Report Type: 
  Country: None (occurrence: None)
  Receive Date: 20071120
  Receipt Date: 20071116
  Transmission Date: 20080405
  Serious: Yes (Death)
  Sender: FDA-Public Use
  Company Number: US-GILEAD-2007-0014347

PATIENT
  Sex: Male

DRUGS (1)
  1. ATRIPLA [Suspect]

REACTIONS (1)
  - DEATH [None]
